FAERS Safety Report 6088842-0 (Version None)
Quarter: 2009Q1

REPORT INFORMATION
  Report Type: 
  Country: None (occurrence: None)
  Receive Date: 20090220
  Receipt Date: 20090220
  Transmission Date: 20090719
  Serious: No
  Sender: FDA-Public Use
  Company Number: None

PATIENT
  Age: 53 Year
  Sex: Female

DRUGS (2)
  1. NEXIUM [Suspect]
     Indication: GASTROOESOPHAGEAL REFLUX DISEASE
     Dosage: TAKE 1 CAPSULE TWICE A DAY 1/2 HOUR BEFORE A.M. AND P.M. MEAL
     Dates: start: 20060101
  2. NEXIUM [Suspect]

REACTIONS (3)
  - AGEUSIA [None]
  - DYSGEUSIA [None]
  - PRODUCT QUALITY ISSUE [None]
